FAERS Safety Report 6095997-0 (Version None)
Quarter: 2009Q1

REPORT INFORMATION
  Report Type: 
  Country: None (occurrence: None)
  Receive Date: 20090227
  Receipt Date: 20081021
  Transmission Date: 20090719
  Serious: No
  Sender: FDA-Public Use
  Company Number: A0740934A

PATIENT
  Age: 66 Year
  Sex: Female

DRUGS (2)
  1. LAMICTAL [Suspect]
     Indication: BIPOLAR DISORDER
     Dosage: .5TAB PER DAY
     Route: 048
     Dates: start: 20080701
  2. CELEBREX [Concomitant]

REACTIONS (2)
  - DECREASED ACTIVITY [None]
  - NECK PAIN [None]
